FAERS Safety Report 8230110-2 (Version None)
Quarter: 2012Q1

REPORT INFORMATION
  Report Type: 
  Country: None (occurrence: None)
  Receive Date: 20120323
  Receipt Date: 20120320
  Transmission Date: 20120608
  Serious: No
  Sender: FDA-Public Use
  Company Number: US-PFIZER INC-2012072862

PATIENT
  Sex: Female
  Weight: 60.317 kg

DRUGS (4)
  1. NITROGLYCERIN [Concomitant]
     Dosage: UNK
  2. AMLODIPINE [Concomitant]
     Dosage: UNK
  3. LYRICA [Suspect]
     Indication: FIBROMYALGIA
     Dosage: 75 MG, 1X/DAY
     Route: 048
     Dates: start: 20120313
  4. XANAX [Concomitant]
     Dosage: 0.25 MG, UNK

REACTIONS (6)
  - ERYTHEMA [None]
  - SOMNOLENCE [None]
  - ANXIETY [None]
  - DEPRESSED MOOD [None]
  - DISTURBANCE IN ATTENTION [None]
  - BURNING SENSATION [None]
